FAERS Safety Report 14236285 (Version 4)
Quarter: 2018Q1

REPORT INFORMATION
  Report Type: Spontaneous
  Country: DK (occurrence: DK)
  Receive Date: 20171129
  Receipt Date: 20180307
  Transmission Date: 20180508
  Serious: Yes (Congenital Anomaly, Other)
  Sender: FDA-Public Use
  Company Number: PHHY2017DK175430

PATIENT
  Sex: Female

DRUGS (5)
  1. PHENOBARBITAL. [Suspect]
     Active Substance: PHENOBARBITAL
     Indication: FOETAL EXPOSURE DURING PREGNANCY
     Dosage: UNK
     Route: 064
  2. LACOSAMIDE. [Concomitant]
     Active Substance: LACOSAMIDE
     Indication: FOETAL EXPOSURE DURING PREGNANCY
     Dosage: UNK
     Route: 064
  3. LEVETIRACETAM. [Suspect]
     Active Substance: LEVETIRACETAM
     Indication: FOETAL EXPOSURE DURING PREGNANCY
     Dosage: UNK
     Route: 064
  4. CARBAMAZEPINE. [Suspect]
     Active Substance: CARBAMAZEPINE
     Indication: FOETAL EXPOSURE DURING PREGNANCY
     Dosage: UNK
     Route: 064
  5. CLONAZEPAM. [Suspect]
     Active Substance: CLONAZEPAM
     Indication: FOETAL EXPOSURE DURING PREGNANCY
     Dosage: UNK
     Route: 064

REACTIONS (4)
  - Low birth weight baby [Unknown]
  - Developmental glaucoma [Unknown]
  - Foetal exposure during pregnancy [Unknown]
  - Premature baby [Unknown]
